FAERS Safety Report 4700544-9 (Version None)
Quarter: 2005Q2

REPORT INFORMATION
  Report Type: 
  Country: None (occurrence: None)
  Receive Date: 20050627
  Receipt Date: 20050627
  Transmission Date: 20051028
  Serious: Yes (Hospitalization)
  Sender: FDA-Public Use
  Company Number: None

PATIENT
  Age: 74 Year
  Sex: Male
  Weight: 133.8111 kg

DRUGS (1)
  1. WARFARIN    7.5MG [Suspect]
     Indication: ATRIAL FIBRILLATION
     Dosage: 7.5MG   QD-M,T,TH-   ORAL;  3.75MG   QD-F-SU,W-   ORAL
     Route: 048
     Dates: start: 20031029, end: 20050512

REACTIONS (1)
  - RECTAL HAEMORRHAGE [None]
